FAERS Safety Report 17884001 (Version 2)
Quarter: 2021Q1

REPORT INFORMATION
  Report Type: Spontaneous
  Country: GR (occurrence: GR)
  Receive Date: 20200611
  Receipt Date: 20210212
  Transmission Date: 20210419
  Serious: Yes (Congenital Anomaly)
  Sender: FDA-Public Use
  Company Number: GR-FERRINGPH-2020FE03661

PATIENT
  Sex: Female
  Weight: 3.07 kg

DRUGS (3)
  1. PROGESTERONE. [Suspect]
     Active Substance: PROGESTERONE
     Indication: PRODUCT USED FOR UNKNOWN INDICATION
     Route: 064
  2. GYNOFEN [Suspect]
     Active Substance: CYPROTERONE ACETATE\ETHINYL ESTRADIOL
     Indication: PRODUCT USED FOR UNKNOWN INDICATION
     Route: 064
  3. ALDACTONE [POTASSIUM CANRENOATE] [Suspect]
     Active Substance: CANRENOATE POTASSIUM
     Indication: PRODUCT USED FOR UNKNOWN INDICATION
     Dosage: UNK
     Route: 064

REACTIONS (9)
  - Mosaicism [Unknown]
  - Enlarged clitoris [Unknown]
  - Congenital genital malformation female [Unknown]
  - Labia enlarged [Unknown]
  - Genitalia external ambiguous [Unknown]
  - Atrial septal defect [Unknown]
  - Vulval disorder [Unknown]
  - Cryptorchism [Unknown]
  - Hypospadias [Unknown]
